FAERS Safety Report 7633804-2 (Version None)
Quarter: 2011Q3

REPORT INFORMATION
  Report Type: 
  Country: None (occurrence: None)
  Receive Date: 20110725
  Receipt Date: 20110719
  Transmission Date: 20111222
  Serious: Yes (Hospitalization, Disabling)
  Sender: FDA-Public Use
  Company Number: FR-MERCK-1107FRA00076

PATIENT
  Age: 62 Year
  Sex: Female

DRUGS (15)
  1. MEROPENEM [Suspect]
     Route: 042
     Dates: start: 20101111, end: 20101121
  2. PRIMAXIN [Suspect]
     Route: 042
     Dates: start: 20101019, end: 20101023
  3. SULFAMETHOXAZOLE AND TRIMETHOPRIM [Suspect]
     Route: 042
     Dates: start: 20101029, end: 20101110
  4. MEROPENEM [Suspect]
     Indication: PNEUMONIA KLEBSIELLA
     Route: 042
     Dates: start: 20101103, end: 20101110
  5. VANCOMYCIN [Suspect]
     Route: 042
     Dates: start: 20101111, end: 20101119
  6. SULFAMETHOXAZOLE AND TRIMETHOPRIM [Suspect]
     Route: 042
     Dates: start: 20101111, end: 20101124
  7. VANCOMYCIN [Suspect]
     Route: 042
     Dates: start: 20101019, end: 20101026
  8. LEVETIRACETAM [Suspect]
     Route: 042
     Dates: start: 20101023, end: 20101102
  9. LEVETIRACETAM [Suspect]
     Route: 042
     Dates: start: 20101103, end: 20101119
  10. LEVETIRACETAM [Suspect]
     Route: 042
     Dates: start: 20101120, end: 20101125
  11. VALACYCLOVIR HYDROCHLORIDE [Concomitant]
     Route: 065
  12. SULFAMETHOXAZOLE AND TRIMETHOPRIM [Suspect]
     Indication: PNEUMOCYSTIS JIROVECI PNEUMONIA
     Route: 042
     Dates: end: 20101028
  13. CANCIDAS [Suspect]
     Indication: BRONCHOPULMONARY ASPERGILLOSIS
     Route: 042
     Dates: start: 20101102, end: 20101124
  14. VALACYCLOVIR HYDROCHLORIDE [Concomitant]
     Route: 065
  15. AMIKACIN SULFATE [Concomitant]
     Route: 065
     Dates: start: 20101019

REACTIONS (4)
  - STATUS EPILEPTICUS [None]
  - DERMATITIS EXFOLIATIVE [None]
  - OVERDOSE [None]
  - PRURITUS [None]
